FAERS Safety Report 9646557 (Version 2)
Quarter: 2013Q4

REPORT INFORMATION
  Report Type: Report from Study
  Country: BR (occurrence: BR)
  Receive Date: 20131025
  Receipt Date: 20131025
  Transmission Date: 20140711
  Serious: Yes (Other)
  Sender: FDA-Public Use
  Company Number: BR-ROCHE-1132629

PATIENT
  Sex: Male
  Weight: 70 kg

DRUGS (5)
  1. INTERFERON ALFA-2A [Suspect]
     Indication: HEPATITIS C
     Route: 065
  2. RIBAVIRIN [Suspect]
     Indication: HEPATITIS C
     Dosage: 2 TABLETS IN THE MORNING AND 2 TABLETS AT NIGHT.
     Route: 048
  3. DAONIL [Concomitant]
     Indication: DIABETES MELLITUS
     Route: 065
  4. PURAN T4 [Concomitant]
     Indication: THYROID DISORDER
     Route: 065
  5. EUPRESSIN [Concomitant]
     Indication: PROSTATIC DISORDER
     Route: 065

REACTIONS (5)
  - Drug ineffective [Unknown]
  - Weight decreased [Recovered/Resolved]
  - Alopecia [Recovered/Resolved]
  - Asthenia [Recovered/Resolved]
  - Viral load increased [Unknown]
